FAERS Safety Report 9759720 (Version 1)
Quarter: 2013Q4

REPORT INFORMATION
  Report Type: Spontaneous
  Country: US (occurrence: US)
  Receive Date: 20131216
  Receipt Date: 20131216
  Transmission Date: 20140711
  Serious: Yes (Hospitalization)
  Sender: FDA-Public Use
  Company Number: US-GILEAD-2010-0029039

PATIENT
  Age: 80 Year
  Sex: Female
  Weight: 47.4 kg

DRUGS (15)
  1. LETAIRIS [Suspect]
     Indication: PULMONARY ARTERIAL HYPERTENSION
     Route: 048
     Dates: start: 20100413
  2. ASPIRIN [Concomitant]
  3. LASIX [Concomitant]
  4. LISINOPRIL [Concomitant]
  5. ATENOLOL [Concomitant]
  6. ETODOLAC [Concomitant]
  7. TRAMADOL HCL [Concomitant]
  8. XANAX [Concomitant]
  9. PREMARIN [Concomitant]
  10. VICODIN [Concomitant]
  11. PRAVASTATIN [Concomitant]
  12. ZETIA [Concomitant]
  13. ZOLOFT [Concomitant]
  14. ALLOPURINOL [Concomitant]
  15. KLOR-CON [Concomitant]

REACTIONS (1)
  - Dyspnoea [Recovering/Resolving]
